FAERS Safety Report 16962786 (Version 4)
Quarter: 2019Q4

REPORT INFORMATION
  Report Type: Report from Study
  Country: US (occurrence: US)
  Receive Date: 20191025
  Receipt Date: 20191206
  Transmission Date: 20200122
  Serious: Yes (Hospitalization)
  Sender: FDA-Public Use
  Company Number: US-ACTELION-A-NJ2019-190482

PATIENT
  Age: 28 Year
  Sex: Female
  Weight: 108.84 kg

DRUGS (4)
  1. SILDENAFIL CITRATE. [Concomitant]
     Active Substance: SILDENAFIL CITRATE
  2. REMODULIN [Suspect]
     Active Substance: TREPROSTINIL
     Indication: PRODUCT USED FOR UNKNOWN INDICATION
     Route: 042
  3. TADALAFIL. [Concomitant]
     Active Substance: TADALAFIL
  4. OPSUMIT [Suspect]
     Active Substance: MACITENTAN
     Indication: PULMONARY ARTERIAL HYPERTENSION
     Dosage: 10 MG, QD
     Route: 048

REACTIONS (10)
  - Tooth abscess [Unknown]
  - Back pain [Unknown]
  - Liver disorder [Unknown]
  - Abdominal pain lower [Unknown]
  - Heart rate increased [Unknown]
  - Complication associated with device [Unknown]
  - Fungal infection [Unknown]
  - Nausea [Unknown]
  - Flatulence [Unknown]
  - Anxiety [Unknown]

NARRATIVE: CASE EVENT DATE: 20191024
